FAERS Safety Report 5958110-3 (Version None)
Quarter: 2008Q4

REPORT INFORMATION
  Report Type: 
  Country: None (occurrence: None)
  Receive Date: 20081119
  Receipt Date: 20081113
  Transmission Date: 20090506
  Serious: Yes (Life-Threatening)
  Sender: FDA-Public Use
  Company Number: JP-BRISTOL-MYERS SQUIBB COMPANY-14407621

PATIENT
  Age: 70 Year
  Sex: Female

DRUGS (3)
  1. STADOL [Suspect]
     Indication: ANAESTHESIA PROCEDURE
     Route: 041
     Dates: start: 20081106, end: 20081106
  2. PROPOFOL [Suspect]
     Indication: ANAESTHESIA PROCEDURE
     Dates: start: 20081106, end: 20081106
  3. PENTCILLIN [Concomitant]
     Dates: start: 20081106, end: 20081106

REACTIONS (1)
  - SHOCK [None]
